FAERS Safety Report 5885745-9 (Version None)
Quarter: 2008Q3

REPORT INFORMATION
  Report Type: 
  Country: None (occurrence: None)
  Receive Date: 20080916
  Receipt Date: 20080905
  Transmission Date: 20090109
  Serious: Yes (Other)
  Sender: FDA-Public Use
  Company Number: US-ELI_LILLY_AND_COMPANY-US200808003592

PATIENT
  Sex: Female

DRUGS (13)
  1. HUMULIN 70/30 [Suspect]
     Dates: start: 20070101
  2. HUMULIN 70/30 [Suspect]
     Dates: start: 20070101
  3. NOVOLIN 70/30 [Concomitant]
  4. LISINOPRIL [Concomitant]
     Indication: HYPERTENSION
     Dosage: 40 MG, DAILY (1/D)
  5. FOLIC ACID [Concomitant]
     Dosage: 1 MG, DAILY (1/D)
     Route: 048
  6. ASPIRIN [Concomitant]
     Indication: CEREBROVASCULAR ACCIDENT
     Dosage: 81 MG, DAILY (1/D)
     Route: 048
  7. PLAVIX [Concomitant]
     Indication: CEREBROVASCULAR ACCIDENT
     Dosage: 75 MG, DAILY (1/D)
     Route: 048
  8. PRAVASTAN [Concomitant]
     Indication: BLOOD CHOLESTEROL INCREASED
     Dosage: 40 MG, DAILY (1/D)
     Route: 048
  9. TOPROL-XL [Concomitant]
     Indication: ATRIAL FIBRILLATION
     Dosage: 20 MG, DAILY (1/D)
     Route: 048
  10. COLCHICINE [Concomitant]
     Indication: GOUT
     Dosage: 0.6 MG, DAILY (1/D)
     Route: 048
  11. TYLENOL (CAPLET) [Concomitant]
     Indication: OSTEOARTHRITIS
  12. LIDODERM [Concomitant]
     Indication: OSTEOARTHRITIS
  13. SOTALOL HCL [Concomitant]
     Indication: ATRIAL FIBRILLATION
     Dosage: 120 MG, 2/D
     Route: 048

REACTIONS (3)
  - BLINDNESS UNILATERAL [None]
  - DIZZINESS [None]
  - VISUAL ACUITY REDUCED [None]
